FAERS Safety Report 12218377 (Version 2)
Quarter: 2016Q2

REPORT INFORMATION
  Report Type: Spontaneous
  Country: FR (occurrence: FR)
  Receive Date: 20160329
  Receipt Date: 20160517
  Transmission Date: 20160815
  Serious: Yes (Hospitalization, Other)
  Sender: FDA-Public Use
  Company Number: FR-ASTRAZENECA-2016SE33067

PATIENT
  Age: 25720 Day
  Sex: Male

DRUGS (6)
  1. GLICLAZIDE [Concomitant]
     Active Substance: GLICLAZIDE
  2. IRBESARTAN/HYDROCHLOROTHIAZIDE [Concomitant]
     Active Substance: HYDROCHLOROTHIAZIDE\IRBESARTAN
  3. KOMBOGLYZE [Suspect]
     Active Substance: METFORMIN HYDROCHLORIDE\SAXAGLIPTIN
     Indication: DIABETES MELLITUS
     Route: 048
     Dates: start: 201504, end: 20160310
  4. JANUMET [Suspect]
     Active Substance: METFORMIN HYDROCHLORIDE\SITAGLIPTIN PHOSPHATE
     Indication: DIABETES MELLITUS
     Route: 048
     Dates: start: 201408, end: 201503
  5. RABEPRAZOLE [Concomitant]
     Active Substance: RABEPRAZOLE
  6. MANIDIPINE [Concomitant]
     Active Substance: MANIDIPINE

REACTIONS (6)
  - Skin plaque [Unknown]
  - Dermatitis [Unknown]
  - Toxic skin eruption [Unknown]
  - Eczema [Recovered/Resolved]
  - Eosinophil count increased [Unknown]
  - Pruritus [Recovered/Resolved]

NARRATIVE: CASE EVENT DATE: 201501
